FAERS Safety Report 7475674-1 (Version None)
Quarter: 2011Q2

REPORT INFORMATION
  Report Type: 
  Country: None (occurrence: None)
  Receive Date: 20110504
  Receipt Date: 20110419
  Transmission Date: 20111010
  Serious: Yes (Hospitalization)
  Sender: FDA-Public Use
  Company Number: AUR-APL-2011-01383

PATIENT
  Age: 31 Year
  Sex: Female

DRUGS (8)
  1. NOVORAPID [Concomitant]
  2. METFORMIN HCL [Concomitant]
  3. SIMVASTATIN [Concomitant]
  4. ACYCLOVIR [Suspect]
     Indication: HERPES ZOSTER
     Dosage: 10MG/KG -TID- UNK
     Dates: start: 20110401
  5. LEVOTHYROXINE SODIUM [Concomitant]
  6. CEPHALEXIN [Suspect]
     Indication: INFECTION
     Dosage: 500MG - BID - UNK
     Dates: start: 20110331
  7. GLICLAZIDE [Concomitant]
  8. INSULIN GLARGINE [Concomitant]

REACTIONS (2)
  - HERPES ZOSTER [None]
  - ALANINE AMINOTRANSFERASE INCREASED [None]
